FAERS Safety Report 7357560-0 (Version None)
Quarter: 2011Q1

REPORT INFORMATION
  Report Type: 
  Country: None (occurrence: None)
  Receive Date: 20110317
  Receipt Date: 20110310
  Transmission Date: 20110831
  Serious: Yes (Hospitalization, Other)
  Sender: FDA-Public Use
  Company Number: US-ELI_LILLY_AND_COMPANY-US201103003947

PATIENT
  Sex: Female

DRUGS (2)
  1. HUMALOG [Suspect]
     Indication: DIABETES MELLITUS
     Dosage: 15 U, 3/D
     Dates: start: 20061001
  2. LANTUS [Concomitant]

REACTIONS (6)
  - SINUSITIS [None]
  - VISION BLURRED [None]
  - BLOOD GLUCOSE INCREASED [None]
  - BLOOD DISORDER [None]
  - APLASIA PURE RED CELL [None]
  - PLATELET COUNT DECREASED [None]
